FAERS Safety Report 9399976 (Version 1)
Quarter: 2013Q3

REPORT INFORMATION
  Report Type: Spontaneous
  Country: US (occurrence: US)
  Receive Date: 20130715
  Receipt Date: 20130715
  Transmission Date: 20140515
  Serious: No
  Sender: FDA-Public Use
  Company Number: US-BAYER-2013-084605

PATIENT
  Age: 56 Year
  Sex: Female
  Weight: 77 kg

DRUGS (2)
  1. ALEVE CAPLET [Suspect]
     Dosage: 1 DF, QD
     Route: 048
     Dates: start: 201305, end: 20130705
  2. ALEVE CAPLET [Suspect]
     Dosage: 1 DF, QD
     Route: 048
     Dates: start: 201305, end: 20130705

REACTIONS (2)
  - Increased tendency to bruise [Not Recovered/Not Resolved]
  - Incorrect drug administration duration [None]
